FAERS Safety Report 4380305-3 (Version None)
Quarter: 2004Q2

REPORT INFORMATION
  Report Type: 
  Country: None (occurrence: None)
  Receive Date: 20040616
  Receipt Date: 20040616
  Transmission Date: 20050107
  Serious: No
  Sender: FDA-Public Use
  Company Number: None

PATIENT
  Age: 41 Year
  Sex: Female
  Weight: 65.7716 kg

DRUGS (2)
  1. LEXAPRO [Suspect]
     Indication: SMOKING CESSATION THERAPY
     Dosage: ONCE DAY ORAL
     Route: 048
     Dates: start: 20030401, end: 20040608
  2. WELLBUTRIN SR [Concomitant]

REACTIONS (13)
  - ABNORMAL DREAMS [None]
  - AGGRESSION [None]
  - ARTHRALGIA [None]
  - CRYING [None]
  - DISTURBANCE IN ATTENTION [None]
  - DRUG WITHDRAWAL SYNDROME [None]
  - INFLUENZA LIKE ILLNESS [None]
  - MEMORY IMPAIRMENT [None]
  - MYALGIA [None]
  - NIGHTMARE [None]
  - PAIN [None]
  - PRURITUS [None]
  - TINNITUS [None]
